FAERS Safety Report 6604598-4 (Version None)
Quarter: 2010Q1

REPORT INFORMATION
  Report Type: 
  Country: None (occurrence: None)
  Receive Date: 20100226
  Receipt Date: 20100104
  Transmission Date: 20100710
  Serious: Yes (Other)
  Sender: FDA-Public Use
  Company Number: A0835628A

PATIENT
  Age: 62 Year
  Sex: Female

DRUGS (11)
  1. LAMICTAL CD [Suspect]
     Indication: DEPRESSION
     Dosage: 12.5MG PER DAY
     Route: 048
     Dates: start: 20091203, end: 20091217
  2. CYMBALTA [Concomitant]
  3. DEXEDRINE [Concomitant]
  4. SPIRONOLACTONE [Concomitant]
  5. LIPITOR [Concomitant]
  6. CARDIZEM [Concomitant]
  7. SYNTHROID [Concomitant]
  8. ACIPHEX [Concomitant]
  9. RAMIPRIL [Concomitant]
  10. GLUCOPHAGE [Concomitant]
  11. TRAZODONE HCL [Concomitant]

REACTIONS (2)
  - RASH ERYTHEMATOUS [None]
  - RASH PAPULAR [None]
